FAERS Safety Report 4734418-4 (Version None)
Quarter: 2005Q3

REPORT INFORMATION
  Report Type: 
  Country: None (occurrence: None)
  Receive Date: 20050804
  Receipt Date: 20050725
  Transmission Date: 20060218
  Serious: Yes (Other)
  Sender: FDA-Public Use
  Company Number: JP-BRISTOL-MYERS SQUIBB COMPANY-13050513

PATIENT
  Age: 56 Year
  Sex: Male

DRUGS (8)
  1. BLEOMYCIN [Suspect]
     Indication: NON-HODGKIN'S LYMPHOMA
     Route: 042
  2. CYCLOPHOSPHAMIDE [Suspect]
     Indication: NON-HODGKIN'S LYMPHOMA
     Route: 042
  3. DOXORUBICIN HCL [Suspect]
     Indication: NON-HODGKIN'S LYMPHOMA
     Route: 042
  4. VEPESID [Suspect]
     Indication: NON-HODGKIN'S LYMPHOMA
     Route: 042
     Dates: start: 20050703
  5. METHOTREXATE [Suspect]
     Indication: NON-HODGKIN'S LYMPHOMA
     Route: 042
  6. PREDNISOLONE [Suspect]
     Indication: NON-HODGKIN'S LYMPHOMA
  7. CYTARABINE [Suspect]
     Indication: NON-HODGKIN'S LYMPHOMA
     Route: 042
  8. VINCRISTINE [Suspect]
     Indication: NON-HODGKIN'S LYMPHOMA
     Route: 042

REACTIONS (2)
  - INTESTINAL PERFORATION [None]
  - PERITONITIS [None]
